FAERS Safety Report 20818808 (Version 1)
Quarter: 2022Q2

REPORT INFORMATION
  Report Type: Report from Study
  Country: JP (occurrence: JP)
  Receive Date: 20220512
  Receipt Date: 20220512
  Transmission Date: 20220721
  Serious: Yes (Other)
  Sender: FDA-Public Use
  Company Number: JP-BAYER-2022A049586

PATIENT
  Age: 51 Year
  Sex: Female
  Weight: 61.1 kg

DRUGS (9)
  1. VITRAKVI [Suspect]
     Active Substance: LAROTRECTINIB
     Indication: NTRK gene fusion overexpression
     Dosage: 100 MG, BID
     Dates: start: 20210928
  2. FLUNITRAZEPAM [Concomitant]
     Active Substance: FLUNITRAZEPAM
     Dosage: DAILY DOSE 1 MG
     Dates: start: 2021
  3. LUNESTA [Concomitant]
     Active Substance: ESZOPICLONE
     Dosage: DAILY DOSE 1 MG
     Dates: start: 2021
  4. DIAZEPAM [Concomitant]
     Active Substance: DIAZEPAM
     Dosage: DAILY DOSE 12 MG
     Dates: start: 2021
  5. ROZEREM [Concomitant]
     Active Substance: RAMELTEON
     Dosage: DAILY DOSE 8 MG
     Dates: start: 2021
  6. MIYA-BM [Concomitant]
     Active Substance: CLOSTRIDIUM BUTYRICUM SPORES STRAIN M-55
     Dosage: DAILY DOSE 3 DF
     Dates: start: 2021
  7. NEXIUM I.V. [Concomitant]
     Active Substance: ESOMEPRAZOLE SODIUM
     Dosage: DAILY DOSE 20 MG
     Dates: start: 2021
  8. MAGNESIUM OXIDE [Concomitant]
     Active Substance: MAGNESIUM OXIDE
     Dosage: DAILY DOSE 330 MG
     Dates: start: 2021
  9. MOSAPRAMINE [Concomitant]
     Active Substance: MOSAPRAMINE
     Dosage: DAILY DOSE 15 MG
     Dates: start: 2021

REACTIONS (4)
  - Myelosuppression [Recovered/Resolved]
  - Renal impairment [Not Recovered/Not Resolved]
  - Hypoalbuminaemia [Not Recovered/Not Resolved]
  - Hepatic function abnormal [Not Recovered/Not Resolved]

NARRATIVE: CASE EVENT DATE: 20211012
